FAERS Safety Report 20899349 (Version 3)
Quarter: 2023Q1

REPORT INFORMATION
  Report Type: Report from Study
  Country: AU (occurrence: AU)
  Receive Date: 20220601
  Receipt Date: 20230105
  Transmission Date: 20230418
  Serious: Yes (Other)
  Sender: FDA-Public Use
  Company Number: AU-NOVARTISPH-NVSC2022AU109718

PATIENT
  Sex: Female

DRUGS (1)
  1. GILENYA [Suspect]
     Active Substance: FINGOLIMOD HYDROCHLORIDE
     Indication: Relapsing-remitting multiple sclerosis
     Dosage: 0.5 MG, QD
     Route: 048
     Dates: start: 20220105

REACTIONS (7)
  - Ocular hypertension [Unknown]
  - Cataract subcapsular [Unknown]
  - Eye swelling [Unknown]
  - Photosensitivity reaction [Unknown]
  - Nasopharyngitis [Unknown]
  - Fatigue [Unknown]
  - Typical aura without headache [Unknown]
